APPROVED DRUG PRODUCT: BACLOFEN
Active Ingredient: BACLOFEN
Strength: 10MG
Dosage Form/Route: TABLET;ORAL
Application: A071260 | Product #001
Applicant: USL PHARMA INC
Approved: May 6, 1988 | RLD: No | RS: No | Type: DISCN